FAERS Safety Report 14367272 (Version 1)
Quarter: 2018Q1

REPORT INFORMATION
  Report Type: Report from Study
  Country: ES (occurrence: ES)
  Receive Date: 20180109
  Receipt Date: 20180109
  Transmission Date: 20180509
  Serious: Yes (Hospitalization)
  Sender: FDA-Public Use
  Company Number: ES-PFIZER INC-2018005988

PATIENT
  Age: 56 Year
  Sex: Male

DRUGS (7)
  1. CISPLATIN. [Suspect]
     Active Substance: CISPLATIN
     Dosage: 25 MG/M2, UNK (3 CYCLE)
     Route: 042
     Dates: start: 20170223, end: 20170226
  2. POLARAMINE [Concomitant]
     Active Substance: DEXCHLORPHENIRAMINE MALEATE
     Indication: PREMEDICATION
     Dosage: 10 MG, UNK
     Route: 042
     Dates: start: 20170223, end: 20170223
  3. CITARABINA [Suspect]
     Active Substance: CYTARABINE
     Dosage: 2 G/M2, UNK
     Route: 042
     Dates: start: 20170223
  4. RITUXIMAB. [Suspect]
     Active Substance: RITUXIMAB
     Dosage: 375 MG/M2, UNK
     Route: 042
     Dates: start: 20170223
  5. PARACETAMOL [Concomitant]
     Active Substance: ACETAMINOPHEN
     Indication: PREMEDICATION
     Dosage: 1 G, UNK
     Route: 042
  6. METHYLPREDNISOLONE SODIUM SUCCINATE. [Suspect]
     Active Substance: METHYLPREDNISOLONE SODIUM SUCCINATE
     Dosage: 500 MG, UNK
     Route: 042
     Dates: start: 20170223, end: 20170227
  7. ETOPOSIDE. [Suspect]
     Active Substance: ETOPOSIDE
     Dosage: 40 MG/M2, UNK (3 CYCLE)
     Route: 042
     Dates: start: 20170223, end: 20170226

REACTIONS (1)
  - Acute kidney injury [Recovered/Resolved with Sequelae]

NARRATIVE: CASE EVENT DATE: 20170226
